FAERS Safety Report 8503973-0 (Version None)
Quarter: 2012Q3

REPORT INFORMATION
  Report Type: 
  Country: None (occurrence: None)
  Receive Date: 20120711
  Receipt Date: 20120704
  Transmission Date: 20120928
  Serious: Yes (Other)
  Sender: FDA-Public Use
  Company Number: DE-009507513-1207DEU000784

PATIENT

DRUGS (8)
  1. JANUVIA [Suspect]
     Indication: DIABETES MELLITUS
     Route: 048
  2. IRBESARTAN AND HYDROCHLOROTHIAZIDE [Concomitant]
  3. PANTOPRAZOLE [Concomitant]
  4. GLIMEPIRIDE [Concomitant]
  5. ALLOPURINOL [Concomitant]
  6. HYDROCHLOROTHIAZIDE [Concomitant]
  7. ALFUZOSIN HYDROCHLORIDE [Concomitant]
  8. IRBESARTAN [Concomitant]

REACTIONS (1)
  - BONE MARROW FAILURE [None]
